FAERS Safety Report 9927514 (Version 2)
Quarter: 2014Q1

REPORT INFORMATION
  Report Type: Spontaneous
  Country: BR (occurrence: BR)
  Receive Date: 20140227
  Receipt Date: 20140227
  Transmission Date: 20141002
  Serious: Yes (Hospitalization)
  Sender: FDA-Public Use
  Company Number: BR-RANBAXY-2014R5-78210

PATIENT
  Age: 4 Year
  Sex: Female
  Weight: 17.8 kg

DRUGS (1)
  1. CEFUROXIME AXETIL [Suspect]
     Indication: BRONCHITIS
     Dosage: 2.5 ML, BID
     Route: 048
     Dates: start: 20140129, end: 20140130

REACTIONS (2)
  - Vomiting [Recovered/Resolved]
  - Product taste abnormal [Unknown]
